FAERS Safety Report 8364417-5 (Version None)
Quarter: 2012Q2

REPORT INFORMATION
  Report Type: 
  Country: None (occurrence: None)
  Receive Date: 20120516
  Receipt Date: 20120504
  Transmission Date: 20120825
  Serious: Yes (Hospitalization, Other)
  Sender: FDA-Public Use
  Company Number: FR-BRISTOL-MYERS SQUIBB COMPANY-16580920

PATIENT
  Age: 79 Year
  Sex: Female

DRUGS (11)
  1. LEVOTHYROXINE SODIUM [Concomitant]
  2. PANTOPRAZOLE [Concomitant]
  3. PERINDOPRIL ERBUMINE [Concomitant]
  4. ZOLPIDEM [Concomitant]
  5. METHOTREXATE [Suspect]
     Indication: RHEUMATOID ARTHRITIS
     Route: 048
     Dates: start: 19980101, end: 20120401
  6. INDAPAMIDE [Concomitant]
     Dosage: FLUDEX LP
  7. ORENCIA [Suspect]
     Indication: RHEUMATOID ARTHRITIS
     Dosage: RECENT ADMINISTRATION:23MAR12
     Dates: start: 20101115, end: 20120323
  8. REMICADE [Suspect]
     Indication: RHEUMATOID ARTHRITIS
     Route: 042
     Dates: start: 20020101, end: 20100601
  9. PREDNISONE TAB [Concomitant]
     Dosage: 2.5 MG TO 5 MG/D
  10. ENBREL [Suspect]
     Indication: RHEUMATOID ARTHRITIS
     Route: 058
     Dates: start: 20100601, end: 20101001
  11. FLECAINIDE ACETATE [Concomitant]
     Dosage: FLECAINE LP

REACTIONS (4)
  - LUNG DISORDER [None]
  - ACUTE MYELOID LEUKAEMIA [None]
  - CARDIAC FAILURE [None]
  - CEREBROVASCULAR ACCIDENT [None]
